FAERS Safety Report 9415434 (Version 1)
Quarter: 2013Q3

REPORT INFORMATION
  Report Type: Spontaneous
  Country: US (occurrence: US)
  Receive Date: 20130723
  Receipt Date: 20130723
  Transmission Date: 20140515
  Serious: Yes (Other)
  Sender: FDA-Public Use
  Company Number: US-MYLANLABS-2013S1015723

PATIENT
  Sex: Female
  Weight: 86.18 kg

DRUGS (3)
  1. DILANTIN [Suspect]
     Indication: GRAND MAL CONVULSION
     Route: 048
     Dates: start: 1968
  2. EXTENDED PHENYTOIN SODIUM CAPSULES, USP [Suspect]
     Indication: GRAND MAL CONVULSION
     Route: 048
  3. SYNTHROID [Concomitant]

REACTIONS (1)
  - Ovarian cyst [Recovered/Resolved]
